FAERS Safety Report 10094257 (Version 1)
Quarter: 2014Q2

REPORT INFORMATION
  Report Type: Spontaneous
  Country: NL (occurrence: NL)
  Receive Date: 20140422
  Receipt Date: 20140422
  Transmission Date: 20141212
  Serious: Yes (Other)
  Sender: FDA-Public Use
  Company Number: NL-009507513-1404NLD009028

PATIENT
  Sex: Female

DRUGS (2)
  1. IMPLANON [Suspect]
     Indication: CONTRACEPTION
     Dosage: UNK
     Route: 058
     Dates: start: 2002
  2. IMPLANON NXT [Suspect]
     Indication: CONTRACEPTION
     Route: 058

REACTIONS (1)
  - Hepatic adenoma [Not Recovered/Not Resolved]
